FAERS Safety Report 18347942 (Version 2)
Quarter: 2022Q1

REPORT INFORMATION
  Report Type: Spontaneous
  Country: IT (occurrence: IT)
  Receive Date: 20201006
  Receipt Date: 20220214
  Transmission Date: 20220424
  Serious: Yes (Other)
  Sender: FDA-Public Use
  Company Number: IT-MINISAL02-436774

PATIENT
  Age: 63 Year
  Sex: Male

DRUGS (21)
  1. OXYCODONE [Suspect]
     Active Substance: OXYCODONE
     Indication: Post-thoracotomy pain syndrome
     Dosage: UNK
     Route: 065
  2. OXYCODONE [Suspect]
     Active Substance: OXYCODONE
     Indication: Chest pain
  3. PREGABALIN [Suspect]
     Active Substance: PREGABALIN
     Indication: Pain
     Dosage: 75 MILLIGRAM, ONCE A DAY
     Route: 065
  4. PREGABALIN [Suspect]
     Active Substance: PREGABALIN
     Indication: Post-thoracotomy pain syndrome
  5. BUPRENORPHINE [Suspect]
     Active Substance: BUPRENORPHINE
     Indication: Post-thoracotomy pain syndrome
     Dosage: UNK
     Route: 065
  6. BUPRENORPHINE [Suspect]
     Active Substance: BUPRENORPHINE
     Indication: Non-cardiac chest pain
     Dosage: UNK
     Route: 065
  7. TAPENTADOL [Suspect]
     Active Substance: TAPENTADOL
     Indication: Post-thoracotomy pain syndrome
     Dosage: UNK
     Route: 065
  8. TAPENTADOL [Suspect]
     Active Substance: TAPENTADOL
     Indication: Chest pain
  9. TRAMADOL [Suspect]
     Active Substance: TRAMADOL
     Indication: Post-thoracotomy pain syndrome
     Dosage: UNK
     Route: 065
  10. TRAMADOL [Suspect]
     Active Substance: TRAMADOL
     Indication: Non-cardiac chest pain
  11. LIDOCAINE [Concomitant]
     Active Substance: LIDOCAINE
     Indication: Product used for unknown indication
     Dosage: UNK
     Route: 065
  12. LIDOCAINE [Concomitant]
     Active Substance: LIDOCAINE
     Dosage: UNK
     Route: 062
  13. PALMIDROL [Concomitant]
     Active Substance: PALMIDROL
     Indication: Product used for unknown indication
     Dosage: 600 MILLIGRAM, ONCE A DAY
     Route: 065
  14. ALPHA LIPOIC ACID [Concomitant]
     Active Substance: .ALPHA.-LIPOIC ACID
     Indication: Product used for unknown indication
     Dosage: 800 MILLIGRAM, ONCE A DAY
     Route: 065
  15. DEXAMETHASONE [Concomitant]
     Active Substance: DEXAMETHASONE
     Indication: Product used for unknown indication
     Dosage: 2 MILLIGRAM
     Route: 065
  16. DEXAMETHASONE [Concomitant]
     Active Substance: DEXAMETHASONE
     Dosage: 4 MILLIGRAM
     Route: 065
  17. MYRRHINIL-INTEST [Concomitant]
     Indication: Product used for unknown indication
     Dosage: 200 MILLIGRAM, ONCE A DAY
     Route: 065
  18. PALMIDROL [Concomitant]
     Active Substance: PALMIDROL
     Indication: Product used for unknown indication
     Dosage: 600 MILLIGRAM, ONCE A DAY
     Route: 065
  19. ROPIVACAINE [Concomitant]
     Active Substance: ROPIVACAINE
     Indication: Product used for unknown indication
     Dosage: 40 MILLIGRAM
     Route: 065
  20. ROPIVACAINE [Concomitant]
     Active Substance: ROPIVACAINE
     Dosage: 60 MILLIGRAM
     Route: 065
  21. .ALPHA.-LIPOIC ACID [Concomitant]
     Active Substance: .ALPHA.-LIPOIC ACID
     Indication: Product used for unknown indication
     Dosage: 800 MILLIGRAM, ONCE A DAY
     Route: 065

REACTIONS (4)
  - Drug intolerance [Unknown]
  - Dizziness [Recovered/Resolved]
  - Constipation [Unknown]
  - Nausea [Unknown]
